FAERS Safety Report 7651165-X (Version None)
Quarter: 2011Q3

REPORT INFORMATION
  Report Type: 
  Country: None (occurrence: None)
  Receive Date: 20110802
  Receipt Date: 20110722
  Transmission Date: 20111222
  Serious: Yes (Other)
  Sender: FDA-Public Use
  Company Number: CA-JNJFOC-20110800162

PATIENT
  Sex: Male

DRUGS (1)
  1. REMICADE [Suspect]
     Indication: PSORIASIS
     Route: 042
     Dates: start: 20100601, end: 20100901

REACTIONS (4)
  - INFUSION RELATED REACTION [None]
  - GAIT DISTURBANCE [None]
  - URTICARIA [None]
  - JOINT STIFFNESS [None]
